FAERS Safety Report 8438849-0 (Version None)
Quarter: 2012Q2

REPORT INFORMATION
  Report Type: 
  Country: None (occurrence: None)
  Receive Date: 20120615
  Receipt Date: 20120606
  Transmission Date: 20120825
  Serious: Yes (Hospitalization)
  Sender: FDA-Public Use
  Company Number: BR-US-EMD SERONO, INC.-7136307

PATIENT
  Sex: Male

DRUGS (8)
  1. TIZANIDINE HYDROCHLORIDE [Concomitant]
     Indication: PRODUCT USED FOR UNKNOWN INDICATION
  2. LOSARTAM (LOSARTAN) [Concomitant]
     Indication: PRODUCT USED FOR UNKNOWN INDICATION
  3. REBIF [Suspect]
     Indication: SECONDARY PROGRESSIVE MULTIPLE SCLEROSIS
     Dates: start: 20120528
  4. RESFENOL (PARACETAMOL) [Concomitant]
     Indication: RHINITIS
  5. RESFENOL (PARACETAMOL) [Concomitant]
     Indication: SINUSITIS
  6. DYPIRONE (DIPYRONE) [Concomitant]
     Indication: PRODUCT USED FOR UNKNOWN INDICATION
  7. CINETOL (BIPERIDEN HYDROCHLORIDE) [Concomitant]
     Indication: PRODUCT USED FOR UNKNOWN INDICATION
  8. BACLOFEN [Concomitant]
     Indication: PRODUCT USED FOR UNKNOWN INDICATION

REACTIONS (7)
  - APATHY [None]
  - FACIAL SPASM [None]
  - HYPERTENSION [None]
  - HEART RATE INCREASED [None]
  - MALAISE [None]
  - INFLUENZA LIKE ILLNESS [None]
  - FATIGUE [None]
